FAERS Safety Report 23178328 (Version 4)
Quarter: 2024Q3

REPORT INFORMATION
  Report Type: Report from Study
  Country: US (occurrence: US)
  Receive Date: 20231113
  Receipt Date: 20240913
  Transmission Date: 20241017
  Serious: Yes (Other)
  Sender: TEVA
  Company Number: US-TEVA-2023-US-2936821

PATIENT
  Age: 42 Year
  Sex: Female

DRUGS (4)
  1. AUSTEDO XR [Suspect]
     Active Substance: DEUTETRABENAZINE
     Indication: Tardive dyskinesia
     Dosage: ONCE A DAY
     Route: 048
     Dates: start: 20230920
  2. AUSTEDO XR [Suspect]
     Active Substance: DEUTETRABENAZINE
     Indication: Tardive dyskinesia
     Dosage: ONCE A DAY
     Route: 048
     Dates: start: 20230920
  3. HYDROXYZINE [Concomitant]
     Active Substance: HYDROXYZINE HYDROCHLORIDE
     Indication: Product used for unknown indication
     Route: 065
  4. GEODON [Concomitant]
     Active Substance: ZIPRASIDONE HYDROCHLORIDE\ZIPRASIDONE MESYLATE
     Indication: Insomnia

REACTIONS (11)
  - Loss of consciousness [Unknown]
  - Fatigue [Unknown]
  - Contusion [Unknown]
  - Corrective lens user [Unknown]
  - Somnolence [Unknown]
  - Poor quality sleep [Unknown]
  - Anger [Unknown]
  - Dyskinesia [Unknown]
  - Muscle twitching [Unknown]
  - Fall [Unknown]
  - Wheelchair user [Unknown]

NARRATIVE: CASE EVENT DATE: 20230101
